FAERS Safety Report 6434945-8 (Version None)
Quarter: 2009Q4

REPORT INFORMATION
  Report Type: 
  Country: None (occurrence: None)
  Receive Date: 20091110
  Receipt Date: 20091105
  Transmission Date: 20100525
  Serious: Yes (Death, Other)
  Sender: FDA-Public Use
  Company Number: NZ-JNJFOC-20091101688

PATIENT
  Sex: Female

DRUGS (4)
  1. RISPERIDONE [Suspect]
     Indication: SCHIZOPHRENIA
     Route: 048
  2. OLANZAPINE [Suspect]
     Indication: SCHIZOPHRENIA
     Route: 048
  3. CLONAZEPAM [Suspect]
     Indication: DRUG USE FOR UNKNOWN INDICATION
     Route: 048
  4. METOPROLOL [Suspect]
     Indication: DRUG USE FOR UNKNOWN INDICATION
     Route: 048

REACTIONS (3)
  - CARDIAC FAILURE [None]
  - DEATH [None]
  - DRUG LEVEL INCREASED [None]
